FAERS Safety Report 5800963-3 (Version None)
Quarter: 2008Q3

REPORT INFORMATION
  Report Type: 
  Country: None (occurrence: None)
  Receive Date: 20080702
  Receipt Date: 20080619
  Transmission Date: 20090109
  Serious: Yes (Other)
  Sender: FDA-Public Use
  Company Number: 2008AL007346

PATIENT
  Age: 78 Year
  Sex: Female

DRUGS (2)
  1. DIGOXIN [Suspect]
     Indication: CARDIAC FAILURE CONGESTIVE
     Dosage: 1 TABLET DAILY PO
     Route: 048
  2. COREG [Concomitant]

REACTIONS (6)
  - DIZZINESS [None]
  - FACIAL BONES FRACTURE [None]
  - FALL [None]
  - HYPOAESTHESIA [None]
  - SKIN MASS [None]
  - TOOTH FRACTURE [None]
